FAERS Safety Report 7943047-0 (Version None)
Quarter: 2011Q4

REPORT INFORMATION
  Report Type: 
  Country: None (occurrence: None)
  Receive Date: 20111128
  Receipt Date: 20111117
  Transmission Date: 20120403
  Serious: Yes (Other)
  Sender: FDA-Public Use
  Company Number: US-BAYER-2011-112407

PATIENT
  Sex: Female

DRUGS (1)
  1. AVELOX [Suspect]
     Indication: OROPHARYNGEAL PAIN
     Dosage: 400 MG, QD
     Route: 048
     Dates: start: 20111116, end: 20111116

REACTIONS (4)
  - ERYTHEMA [None]
  - PRURITUS [None]
  - DYSPNOEA [None]
  - FEELING HOT [None]
